FAERS Safety Report 23942896 (Version 2)
Quarter: 2024Q3

REPORT INFORMATION
  Report Type: Spontaneous
  Country: US (occurrence: US)
  Receive Date: 20240605
  Receipt Date: 20240704
  Transmission Date: 20241017
  Serious: No
  Sender: BLUEPRINT MEDICINES
  Company Number: US-Blueprint Medicines Corporation-3794

PATIENT
  Sex: Female

DRUGS (1)
  1. AYVAKIT [Suspect]
     Active Substance: AVAPRITINIB
     Indication: Systemic mastocytosis
     Route: 065

REACTIONS (5)
  - Blood pressure systolic increased [Unknown]
  - Blood glucose decreased [Unknown]
  - Arthropathy [Unknown]
  - Paraesthesia [Unknown]
  - Chromaturia [Unknown]
